FAERS Safety Report 14155278 (Version 1)
Quarter: 2017Q4

REPORT INFORMATION
  Report Type: Report from Study
  Country: BE (occurrence: BE)
  Receive Date: 20171103
  Receipt Date: 20171103
  Transmission Date: 20180321
  Serious: Yes (Death, Other)
  Sender: FDA-Public Use
  Company Number: BE-ROCHE-1938057

PATIENT

DRUGS (3)
  1. TENECTEPLASE [Suspect]
     Active Substance: TENECTEPLASE
     Route: 042
  2. TENECTEPLASE [Suspect]
     Active Substance: TENECTEPLASE
     Indication: ACUTE MYOCARDIAL INFARCTION
     Route: 042
  3. TENECTEPLASE [Suspect]
     Active Substance: TENECTEPLASE
     Route: 042

REACTIONS (11)
  - Ischaemic stroke [Unknown]
  - Haemorrhage [Unknown]
  - Anaphylactic reaction [Unknown]
  - Cerebral infarction [Unknown]
  - Haemorrhage intracranial [Fatal]
  - Cerebrovascular accident [Fatal]
  - Pulmonary oedema [Unknown]
  - Haemorrhagic transformation stroke [Unknown]
  - Cardiogenic shock [Unknown]
  - Myocardial infarction [Unknown]
  - Coronary revascularisation [Unknown]
